FAERS Safety Report 5483287-6 (Version None)
Quarter: 2007Q4

REPORT INFORMATION
  Report Type: 
  Country: None (occurrence: None)
  Receive Date: 20071012
  Receipt Date: 20071003
  Transmission Date: 20080405
  Serious: Yes (Hospitalization, Other)
  Sender: FDA-Public Use
  Company Number: PHEH2007US12788

PATIENT
  Age: 17 Year
  Sex: Female

DRUGS (6)
  1. EXJADE [Suspect]
     Indication: IRON OVERLOAD
     Dosage: 1000 MG, QD
     Route: 048
     Dates: start: 20070301, end: 20070423
  2. HYDROXYUREA [Concomitant]
     Indication: SICKLE CELL ANAEMIA
     Dosage: 1000 MG, QD
     Route: 048
     Dates: start: 20050203
  3. FOLIC ACID [Concomitant]
     Indication: SICKLE CELL ANAEMIA
     Dosage: 1 MG, QD
     Route: 048
     Dates: start: 19920101
  4. ASCORBIC ACID [Concomitant]
     Indication: IRON OVERLOAD
     Dosage: 500 MG, BID
     Route: 048
     Dates: start: 20070502
  5. MOTRIN [Concomitant]
     Indication: PAIN
     Dosage: 800 MG TID, PRN
     Dates: start: 20000101
  6. TYLENOL W/ CODEINE NO. 3 [Concomitant]
     Indication: PAIN
     Dosage: 1-2 TABS, PRN
     Dates: start: 20000101

REACTIONS (23)
  - ABDOMINAL PAIN UPPER [None]
  - ALANINE AMINOTRANSFERASE INCREASED [None]
  - ASPARTATE AMINOTRANSFERASE INCREASED [None]
  - BACK PAIN [None]
  - BIOPSY LIVER ABNORMAL [None]
  - BLOOD ALKALINE PHOSPHATASE INCREASED [None]
  - BLOOD CREATININE DECREASED [None]
  - BLOOD UREA DECREASED [None]
  - CHEST PAIN [None]
  - CHOLECYSTITIS ACUTE [None]
  - FLANK PAIN [None]
  - GALLBLADDER DISORDER [None]
  - GAMMA-GLUTAMYLTRANSFERASE ABNORMAL [None]
  - HAEMATOCRIT DECREASED [None]
  - HAEMOCHROMATOSIS [None]
  - HAEMOGLOBIN DECREASED [None]
  - PLATELET COUNT INCREASED [None]
  - RED BLOOD CELL COUNT DECREASED [None]
  - RETICULOCYTE COUNT INCREASED [None]
  - SERUM FERRITIN INCREASED [None]
  - SICKLE CELL ANAEMIA WITH CRISIS [None]
  - SPLEEN DISORDER [None]
  - ULTRASOUND ABDOMEN ABNORMAL [None]
